FAERS Safety Report 7313720-6 (Version None)
Quarter: 2011Q1

REPORT INFORMATION
  Report Type: 
  Country: None (occurrence: None)
  Receive Date: 20110225
  Receipt Date: 20110218
  Transmission Date: 20110831
  Serious: Yes (Other)
  Sender: FDA-Public Use
  Company Number: US-TYCO HEALTHCARE/MALLINCKRODT-T201100347

PATIENT
  Sex: Male
  Weight: 19.501 kg

DRUGS (2)
  1. METHYLIN ER [Suspect]
     Indication: OBSESSIVE-COMPULSIVE DISORDER
  2. METHYLIN ER [Suspect]
     Indication: ATTENTION DEFICIT/HYPERACTIVITY DISORDER
     Dosage: 10 MG, SINGLE
     Dates: start: 20110217, end: 20110217

REACTIONS (3)
  - MANIA [None]
  - VOMITING [None]
  - NAUSEA [None]
